FAERS Safety Report 8817861 (Version 1)
Quarter: 2012Q4

REPORT INFORMATION
  Report Type: 
  Country: AU (occurrence: AU)
  Receive Date: 20121004
  Receipt Date: 20121004
  Transmission Date: 20130627
  Serious: Yes (Other)
  Sender: FDA-Public Use
  Company Number: AU-ROCHE-1134014

PATIENT
  Age: 84 Year
  Sex: Male

DRUGS (4)
  1. RITUXIMAB [Suspect]
     Indication: B-CELL SMALL LYMPHOCYTIC LYMPHOMA
     Route: 065
  2. CYCLOPHOSPHAMIDE [Concomitant]
     Indication: B-CELL SMALL LYMPHOCYTIC LYMPHOMA
  3. VINCRISTINE [Concomitant]
     Indication: B-CELL SMALL LYMPHOCYTIC LYMPHOMA
  4. PREDNISOLONE [Concomitant]
     Indication: B-CELL SMALL LYMPHOCYTIC LYMPHOMA

REACTIONS (10)
  - Renal impairment [Unknown]
  - Squamous cell carcinoma of skin [Unknown]
  - Lymphadenopathy [Unknown]
  - Abdominal discomfort [Unknown]
  - Abdominal distension [Unknown]
  - Lymphocytosis [Unknown]
  - Otitis media chronic [Unknown]
  - Neuropathy peripheral [Unknown]
  - Neutropenia [Unknown]
  - Lymphadenopathy [Unknown]
